FAERS Safety Report 8423847-3 (Version None)
Quarter: 2012Q2

REPORT INFORMATION
  Report Type: 
  Country: None (occurrence: None)
  Receive Date: 20120608
  Receipt Date: 20120326
  Transmission Date: 20120825
  Serious: No
  Sender: FDA-Public Use
  Company Number: US-ASTRAZENECA-2011SE48509

PATIENT
  Age: 75 Year
  Sex: Female
  Weight: 66.2 kg

DRUGS (12)
  1. ATACAND [Suspect]
     Indication: ATRIAL FIBRILLATION
     Route: 048
     Dates: start: 20090101, end: 20120201
  2. ATACAND [Suspect]
     Indication: HEART RATE IRREGULAR
     Route: 048
     Dates: start: 20090101, end: 20120201
  3. COUMADIN [Concomitant]
  4. COZAAR [Concomitant]
  5. ATACAND [Suspect]
     Indication: HYPERTENSION
     Route: 048
     Dates: start: 20090101, end: 20120201
  6. MICARDIS [Concomitant]
  7. ATACAND HCT [Suspect]
     Indication: ATRIAL FIBRILLATION
     Route: 048
     Dates: start: 20090101, end: 20120201
  8. DIOVAN [Suspect]
     Route: 065
  9. CLIMIPIRIDE [Concomitant]
  10. ATACAND HCT [Suspect]
     Indication: HEART RATE IRREGULAR
     Route: 048
     Dates: start: 20090101, end: 20120201
  11. ATACAND HCT [Suspect]
     Indication: HYPERTENSION
     Route: 048
     Dates: start: 20090101, end: 20120201
  12. ACCUPRIL [Concomitant]

REACTIONS (2)
  - MALAISE [None]
  - ALOPECIA [None]
